FAERS Safety Report 9272019 (Version 2)
Quarter: 2014Q1

REPORT INFORMATION
  Report Type: Spontaneous
  Country: US (occurrence: US)
  Receive Date: 20130506
  Receipt Date: 20140114
  Transmission Date: 20141002
  Serious: Yes (Disabling, Other)
  Sender: FDA-Public Use
  Company Number: US-ASTRAZENECA-2013SE27452

PATIENT
  Age: 33 Year
  Sex: Female
  Weight: 65.8 kg

DRUGS (28)
  1. NEXIUM [Suspect]
     Indication: GASTROOESOPHAGEAL REFLUX DISEASE
     Route: 048
     Dates: start: 1995, end: 2002
  2. NEXIUM [Suspect]
     Indication: DYSPEPSIA
     Route: 048
     Dates: start: 1995, end: 2002
  3. PRILOSEC [Suspect]
     Indication: GASTROOESOPHAGEAL REFLUX DISEASE
     Route: 048
     Dates: start: 2002, end: 2012
  4. PROTONIX [Concomitant]
     Indication: GASTROOESOPHAGEAL REFLUX DISEASE
     Dates: start: 201309
  5. PREVACID [Concomitant]
     Indication: GASTROOESOPHAGEAL REFLUX DISEASE
     Dosage: 1 TIME DAILY FOR
     Dates: start: 2008, end: 201308
  6. DEXILANT [Concomitant]
     Dates: start: 2013
  7. TUMS [Concomitant]
     Indication: GASTROOESOPHAGEAL REFLUX DISEASE
     Dosage: OVER THE COUNTER
     Dates: start: 2010, end: 2013
  8. TUMS [Concomitant]
     Indication: DYSPEPSIA
     Dosage: OVER THE COUNTER
     Dates: start: 2010, end: 2013
  9. IBUPROFEN [Concomitant]
  10. CLONAZEPAM [Concomitant]
     Indication: ANXIETY
  11. CLONAZEPAM [Concomitant]
     Indication: PANIC ATTACK
  12. MIRTAZIPINE [Concomitant]
  13. ZOLPIDEM [Concomitant]
  14. SUCRALFATE [Concomitant]
  15. FLUOXETINE [Concomitant]
  16. ROPINROLE [Concomitant]
  17. TAMSULOSIN [Concomitant]
  18. LEVAQUIN [Concomitant]
  19. GABAPENTIN [Concomitant]
  20. PROMETHAZINE [Concomitant]
  21. CITALOPRAM [Concomitant]
  22. FAMCICLOVIR [Concomitant]
  23. PHENAZOPYRID [Concomitant]
  24. TAMIFLU [Concomitant]
  25. VOLATREN [Concomitant]
  26. TRI-VENT [Concomitant]
  27. LIPITOR [Concomitant]
  28. HORMONE REPLACEMENT [Concomitant]
     Dates: start: 1990, end: 1995

REACTIONS (9)
  - Wrist fracture [Unknown]
  - Foot fracture [Unknown]
  - Fall [Unknown]
  - Osteoporosis [Unknown]
  - Bone loss [Unknown]
  - Injury [Unknown]
  - Anxiety [Unknown]
  - Panic attack [Unknown]
  - Angina pectoris [Unknown]
